FAERS Safety Report 15549922 (Version 1)
Quarter: 2018Q4

REPORT INFORMATION
  Report Type: Spontaneous
  Country: US (occurrence: US)
  Receive Date: 20181018
  Receipt Date: 20181018
  Transmission Date: 20190205
  Serious: Yes (Life-Threatening, Hospitalization)
  Sender: FDA-Public Use
  Company Number: None

PATIENT
  Age: 70 Year
  Sex: Male

DRUGS (10)
  1. IDELALISIB [Suspect]
     Active Substance: IDELALISIB
     Indication: PRODUCT USED FOR UNKNOWN INDICATION
     Dosage: ?          OTHER DOSE:100MG (IDELA VS PL;?
     Route: 048
     Dates: start: 20160906, end: 20181011
  2. ALBUTEROL HFA INHALER 90MCG/ACTUATION [Concomitant]
  3. GABAPENTIN (NEURONTIN) 300 MG CAPSULE [Concomitant]
  4. ENTACAVIR (BARACLUDE) 0.5 MG TABLET [Concomitant]
  5. POSACONAZOLA (NOXAFIL) 100 MG DR TABLET [Concomitant]
  6. SULFAMETHOMAZOLA-TRIMETHOPRIM (BACTRIM) 400-80 MG TABLET [Concomitant]
  7. CEFDINIR (OMNICEF) 300 MG CAPSULE [Concomitant]
  8. IRB J1633 IDELALISIB/PLACEBO 100 MG TABLET [Concomitant]
  9. PIOGLITAZONE-METFORMIN (ACTOPLUS MET) 15-500 MG TABLET [Concomitant]
  10. VALACYCLOVIR (VALTREX) 500 MG TABLET [Concomitant]

REACTIONS (9)
  - Pneumonia bacterial [None]
  - Device related infection [None]
  - Pneumonia viral [None]
  - Computerised tomogram thorax abnormal [None]
  - Cytomegalovirus viraemia [None]
  - Staphylococcal bacteraemia [None]
  - Klebsiella bacteraemia [None]
  - Pneumonia fungal [None]
  - Lung infiltration [None]

NARRATIVE: CASE EVENT DATE: 20181013
